FAERS Safety Report 8818121 (Version 1)
Quarter: 2012Q4

REPORT INFORMATION
  Report Type: 
  Country: US (occurrence: US)
  Receive Date: 20121001
  Receipt Date: 20121001
  Transmission Date: 20130627
  Serious: Yes (Other)
  Sender: FDA-Public Use
  Company Number: US-ROCHE-CID000000002126526

PATIENT
  Sex: Female

DRUGS (4)
  1. HERCEPTIN [Suspect]
     Indication: BREAST CANCER METASTATIC
     Dosage: loading dose
     Route: 042
     Dates: start: 19990421
  2. HERCEPTIN [Suspect]
     Indication: BONE NEOPLASM MALIGNANT
     Dosage: maintenance dose
     Route: 042
  3. HERCEPTIN [Suspect]
     Indication: LYMPHOMA
  4. TAXOL [Concomitant]

REACTIONS (4)
  - Left ventricular dysfunction [Unknown]
  - Dilatation ventricular [Unknown]
  - Cardiomyopathy [Unknown]
  - Palpitations [Recovered/Resolved]
